FAERS Safety Report 5258207-X (Version None)
Quarter: 2007Q1

REPORT INFORMATION
  Report Type: 
  Country: None (occurrence: None)
  Receive Date: 20070307
  Receipt Date: 20070227
  Transmission Date: 20070707
  Serious: Yes (Hospitalization, Other)
  Sender: FDA-Public Use
  Company Number: US-MERCK-0702USA04598

PATIENT
  Age: 60 Year
  Sex: Male

DRUGS (8)
  1. DECADRON [Suspect]
     Route: 048
     Dates: start: 20060101, end: 20070211
  2. REVLIMID [Suspect]
     Indication: MULTIPLE MYELOMA
     Route: 048
     Dates: start: 20070101
  3. THALOMID [Suspect]
     Indication: MULTIPLE MYELOMA
     Route: 048
     Dates: start: 20060601, end: 20060801
  4. THALOMID [Suspect]
     Route: 048
     Dates: start: 20060201, end: 20060601
  5. ACYCLOVIR [Concomitant]
     Route: 065
  6. VITAMINS (UNSPECIFIED) [Concomitant]
     Route: 065
  7. FOLIC ACID [Concomitant]
     Route: 065
  8. BACTRIM DS [Concomitant]
     Route: 065

REACTIONS (4)
  - BLOOD IMMUNOGLOBULIN G INCREASED [None]
  - CONFUSIONAL STATE [None]
  - HYPOGLYCAEMIA [None]
  - LOSS OF CONSCIOUSNESS [None]
